FAERS Safety Report 8976126 (Version 2)
Quarter: 2013Q1

REPORT INFORMATION
  Report Type: Report from Study
  Country: JP (occurrence: JP)
  Receive Date: 20121220
  Receipt Date: 20130102
  Transmission Date: 20140127
  Serious: Yes (Other)
  Sender: FDA-Public Use
  Company Number: JP-ROCHE-1165899

PATIENT
  Age: 62 Year
  Sex: Female
  Weight: 63.3 kg

DRUGS (8)
  1. BEVACIZUMAB [Suspect]
     Indication: BREAST CANCER
     Dosage: DATE OF LAST DOSE PRIOR TO SAE- 02/NOV/2009, 950 MG/BODY
     Route: 065
     Dates: start: 20081110, end: 20081222
  2. BEVACIZUMAB [Suspect]
     Route: 065
     Dates: end: 20091102
  3. EPIRUBICIN [Suspect]
     Indication: BREAST CANCER
     Dosage: DATE OF LAST DOSE PRIOR TO SAE- 02/MAR/2009
     Route: 065
     Dates: start: 20081110
  4. CYCLOPHOSPHAMIDE [Suspect]
     Indication: BREAST CANCER
     Dosage: DATE OF LAST DOSE PRIOR TO SAE- 02/MAR/2009
     Route: 003
     Dates: start: 20081110
  5. NIFEDIPINE [Concomitant]
     Dosage: 20MG/BODY
     Route: 065
     Dates: start: 20081223
  6. MAGNESIUM OXIDE [Concomitant]
     Route: 065
     Dates: start: 20081111
  7. ISOSORBIDE DINITRATE [Concomitant]
     Route: 065
     Dates: start: 20120305
  8. CANDESARTAN [Concomitant]
     Dosage: 8 MG/BODY
     Route: 065
     Dates: start: 20121226

REACTIONS (1)
  - Loss of consciousness [Recovered/Resolved]
